FAERS Safety Report 15117625 (Version 2)
Quarter: 2018Q3

REPORT INFORMATION
  Report Type: Spontaneous
  Country: US (occurrence: US)
  Receive Date: 20180706
  Receipt Date: 20180716
  Transmission Date: 20181010
  Serious: Yes (Hospitalization, Other)
  Sender: FDA-Public Use
  Company Number: US-ACTELION-A-NJ2018-169710

PATIENT
  Age: 51 Year
  Sex: Male

DRUGS (2)
  1. OPSUMIT [Suspect]
     Active Substance: MACITENTAN
     Indication: PULMONARY ARTERIAL HYPERTENSION
     Dosage: 10 MG, QD
     Route: 048
  2. ADCIRCA [Concomitant]
     Active Substance: TADALAFIL

REACTIONS (7)
  - Chest pain [Unknown]
  - Bronchitis [Unknown]
  - Ascites [Unknown]
  - Dyspnoea [Unknown]
  - Fatigue [Unknown]
  - Paracentesis [Unknown]
  - Pain [Unknown]
